FAERS Safety Report 12893309 (Version 1)
Quarter: 2016Q4

REPORT INFORMATION
  Report Type: Spontaneous
  Country: US (occurrence: US)
  Receive Date: 20161027
  Receipt Date: 20161027
  Transmission Date: 20170207
  Serious: Yes (Hospitalization)
  Sender: FDA-Public Use
  Company Number: None

PATIENT
  Age: 75 Year
  Sex: Female

DRUGS (12)
  1. VITAMIN D2 [Concomitant]
     Active Substance: ERGOCALCIFEROL
  2. VITAMIN B12 [Concomitant]
     Active Substance: CYANOCOBALAMIN
  3. ASPIRIN. [Concomitant]
     Active Substance: ASPIRIN
  4. XELJANZ [Suspect]
     Active Substance: TOFACITINIB CITRATE
     Indication: RHEUMATOID ARTHRITIS
     Route: 048
     Dates: start: 20140216
  5. GLIPIZIDE. [Concomitant]
     Active Substance: GLIPIZIDE
  6. MTX [Concomitant]
     Active Substance: METHOTREXATE SODIUM
  7. LYRICA [Concomitant]
     Active Substance: PREGABALIN
  8. LISINOPRIL. [Concomitant]
     Active Substance: LISINOPRIL
  9. GLUCOTROL [Concomitant]
     Active Substance: GLIPIZIDE
  10. FOLIC ACID. [Concomitant]
     Active Substance: FOLIC ACID
  11. VITAMIN C [Concomitant]
     Active Substance: ASCORBIC ACID
  12. SULINDAC. [Concomitant]
     Active Substance: SULINDAC

REACTIONS (1)
  - Hospitalisation [None]

NARRATIVE: CASE EVENT DATE: 20161010
